FAERS Safety Report 22974364 (Version 4)
Quarter: 2024Q4

REPORT INFORMATION
  Report Type: Report from Study
  Country: CL (occurrence: CL)
  Receive Date: 20230923
  Receipt Date: 20241119
  Transmission Date: 20250115
  Serious: Yes (Life-Threatening, Disabling, Other)
  Sender: NOVARTIS
  Company Number: CL-002147023-NVSC2023CL193419

PATIENT
  Age: 3 Month
  Sex: Female

DRUGS (5)
  1. ZOLGENSMA [Suspect]
     Active Substance: ONASEMNOGENE ABEPARVOVEC-XIOI
     Indication: Spinal muscular atrophy
     Dosage: 1 DOSAGE FORM, ONCE/SINGLE (SINGLE DOSE)
     Route: 042
     Dates: start: 20230824, end: 20230824
  2. CETIRIZINE [Concomitant]
     Active Substance: CETIRIZINE HYDROCHLORIDE
     Indication: Product used for unknown indication
     Dosage: UNK
     Route: 065
  3. CETIRIZINE [Concomitant]
     Active Substance: CETIRIZINE HYDROCHLORIDE
     Dosage: 9 DROPS ONE DAILY (10MG/1ML (REMITEX))
     Route: 048
  4. BUDESONIDE [Concomitant]
     Active Substance: BUDESONIDE
     Indication: Product used for unknown indication
     Dosage: UNK (EVERY 6 MONTHS)
     Route: 065
  5. BUDESONIDE [Concomitant]
     Active Substance: BUDESONIDE
     Dosage: 200 MCG, QD (2 PUFFS)
     Route: 055

REACTIONS (7)
  - Respiratory disorder [Unknown]
  - Movement disorder [Recovering/Resolving]
  - Pneumonia [Recovered/Resolved]
  - Transaminases increased [Recovering/Resolving]
  - Platelet count decreased [Recovered/Resolved]
  - Troponin increased [Unknown]
  - Illness [Unknown]

NARRATIVE: CASE EVENT DATE: 20241001
